FAERS Safety Report 16764489 (Version 1)
Quarter: 2019Q3

REPORT INFORMATION
  Report Type: Spontaneous
  Country: FR (occurrence: FR)
  Receive Date: 20190902
  Receipt Date: 20190902
  Transmission Date: 20191005
  Serious: Yes (Death)
  Sender: FDA-Public Use
  Company Number: FR-009507513-1908FRA010260

PATIENT
  Age: 48 Year
  Sex: Female
  Weight: 48 kg

DRUGS (2)
  1. NOXAFIL [Suspect]
     Active Substance: POSACONAZOLE
     Indication: ANTIFUNGAL PROPHYLAXIS
     Dosage: 300 MILLIGRAM, QD (FORMULATION: GASTRO-RESISTANT TABLET)
     Route: 048
     Dates: start: 20190312, end: 20190710
  2. PROGRAF [Interacting]
     Active Substance: TACROLIMUS\TACROLIMUS ANHYDROUS
     Indication: AUTOLOGOUS HAEMATOPOIETIC STEM CELL TRANSPLANT
     Route: 048
     Dates: start: 201804, end: 20190708

REACTIONS (3)
  - Overdose [Fatal]
  - Drug interaction [Fatal]
  - Confusional state [Recovered/Resolved]

NARRATIVE: CASE EVENT DATE: 20190312
